FAERS Safety Report 12881054 (Version 1)
Quarter: 2016Q4

REPORT INFORMATION
  Report Type: Spontaneous
  Country: US (occurrence: US)
  Receive Date: 20161025
  Receipt Date: 20161025
  Transmission Date: 20170207
  Serious: Yes (Hospitalization)
  Sender: FDA-Public Use
  Company Number: None

PATIENT
  Age: 69 Year
  Sex: Male
  Weight: 75.9 kg

DRUGS (12)
  1. LEVEMIR [Suspect]
     Active Substance: INSULIN DETEMIR
     Indication: DIABETES MELLITUS
     Dosage: CHRONIC
     Route: 058
  2. DILAUDID [Concomitant]
     Active Substance: HYDROMORPHONE HYDROCHLORIDE
  3. NTG [Concomitant]
     Active Substance: NITROGLYCERIN
  4. COREG [Concomitant]
     Active Substance: CARVEDILOL
  5. HUMULIN NOS [Suspect]
     Active Substance: INSULIN HUMAN
     Indication: DIABETES MELLITUS
     Dosage: SSI Q6HRS SQ?CHRONIC
     Route: 058
  6. ALBUTEROL. [Concomitant]
     Active Substance: ALBUTEROL
  7. APAP [Concomitant]
     Active Substance: ACETAMINOPHEN
  8. DURAGESIC [Concomitant]
     Active Substance: FENTANYL
  9. MELATONIN [Concomitant]
     Active Substance: MELATONIN
  10. ASA [Concomitant]
     Active Substance: ASPIRIN
  11. DULCOLAX NOS [Concomitant]
     Active Substance: BISACODYL OR DOCUSATE SODIUM
  12. COLACE [Concomitant]
     Active Substance: DOCUSATE SODIUM

REACTIONS (1)
  - Hypoglycaemia [None]

NARRATIVE: CASE EVENT DATE: 20150507
